FAERS Safety Report 22953212 (Version 4)
Quarter: 2023Q4

REPORT INFORMATION
  Report Type: Spontaneous
  Country: US (occurrence: US)
  Receive Date: 20230918
  Receipt Date: 20231213
  Transmission Date: 20240109
  Serious: No
  Sender: FDA-Public Use
  Company Number: US-PFIZER INC-PV202300147886

PATIENT
  Age: 13 Year
  Sex: Male
  Weight: 43.991 kg

DRUGS (1)
  1. GENOTROPIN [Suspect]
     Active Substance: SOMATROPIN
     Indication: Blood growth hormone abnormal
     Dosage: 1.2 MG, 1X/DAY (INJECTION)

REACTIONS (1)
  - Wrong technique in device usage process [Unknown]
